FAERS Safety Report 18606033 (Version 1)
Quarter: 2020Q4

REPORT INFORMATION
  Report Type: Spontaneous
  Country: CA (occurrence: CA)
  Receive Date: 20201211
  Receipt Date: 20201211
  Transmission Date: 20210114
  Serious: No
  Sender: FDA-Public Use
  Company Number: CA-VIVUS, INC.-2019V1001176

PATIENT
  Age: 62 Year
  Sex: Female
  Weight: 45.4 kg

DRUGS (1)
  1. PANCREASE MT [Suspect]
     Active Substance: PANCRELIPASE
     Indication: PANCREATIC FAILURE
     Dosage: MT 4/40 CAPSULES
     Route: 048

REACTIONS (3)
  - Abdominal pain [Not Recovered/Not Resolved]
  - Nausea [Not Recovered/Not Resolved]
  - Diarrhoea [Not Recovered/Not Resolved]

NARRATIVE: CASE EVENT DATE: 20191107
